FAERS Safety Report 16318409 (Version 1)
Quarter: 2019Q2

REPORT INFORMATION
  Report Type: Spontaneous
  Country: JP (occurrence: JP)
  Receive Date: 20190516
  Receipt Date: 20190516
  Transmission Date: 20190711
  Serious: Yes (Hospitalization)
  Sender: FDA-Public Use
  Company Number: JP-SA-2019SA130468

PATIENT
  Age: 88 Year

DRUGS (1)
  1. AMARYL [Suspect]
     Active Substance: GLIMEPIRIDE
     Indication: PRODUCT USED FOR UNKNOWN INDICATION
     Dosage: 0.5 MG, TWICE A DAY IN THE MORNING AND EVENING
     Route: 048
     Dates: start: 20190213

REACTIONS (2)
  - Lumbar spinal stenosis [Unknown]
  - Blood glucose increased [Unknown]
